FAERS Safety Report 5355509-3 (Version None)
Quarter: 2007Q2

REPORT INFORMATION
  Report Type: 
  Country: None (occurrence: None)
  Receive Date: 20070612
  Receipt Date: 20070612
  Transmission Date: 20071010
  Serious: No
  Sender: FDA-Public Use
  Company Number: None

PATIENT
  Age: 9 Year
  Sex: Female

DRUGS (2)
  1. GASTROCROM [Suspect]
     Dosage: SOLUTION, CONCENTRATE
  2. INTAL [Suspect]
     Dosage: SOLUTION

REACTIONS (2)
  - CIRCUMSTANCE OR INFORMATION CAPABLE OF LEADING TO MEDICATION ERROR [None]
  - MEDICATION ERROR [None]
